FAERS Safety Report 4902275-9 (Version None)
Quarter: 2006Q1

REPORT INFORMATION
  Report Type: 
  Country: None (occurrence: None)
  Receive Date: 20060202
  Receipt Date: 20060120
  Transmission Date: 20060701
  Serious: Yes (Disabling, Other)
  Sender: FDA-Public Use
  Company Number: 2005155571

PATIENT
  Sex: Male
  Weight: 65.7716 kg

DRUGS (3)
  1. VIAGRA [Suspect]
     Indication: ERECTILE DYSFUNCTION
     Dosage: 50 MG (50 MG, 2 IN 7 D)
     Dates: start: 20030701, end: 20041231
  2. THERAGRAN-M (MINERALS NOS, VITAMINS NOS) [Concomitant]
  3. ASPIRIN [Concomitant]

REACTIONS (1)
  - BLINDNESS UNILATERAL [None]
